FAERS Safety Report 7116062-7 (Version None)
Quarter: 2010Q4

REPORT INFORMATION
  Report Type: 
  Country: None (occurrence: None)
  Receive Date: 20101122
  Receipt Date: 20101112
  Transmission Date: 20110411
  Serious: Yes (Hospitalization)
  Sender: FDA-Public Use
  Company Number: JP-BAXTER-2010BH028443

PATIENT
  Age: 60 Year
  Sex: Male

DRUGS (6)
  1. CYCLOPHOSPHAMIDE [Suspect]
     Indication: MULTIPLE MYELOMA
     Route: 041
     Dates: start: 20101014, end: 20101015
  2. AMLODIPINE BESYLATE [Concomitant]
     Indication: HYPERTENSION
     Route: 048
     Dates: end: 20101110
  3. TAKEPRON [Concomitant]
     Indication: PROPHYLAXIS
     Route: 048
  4. DIFLUCAN [Concomitant]
     Indication: PROPHYLAXIS
     Route: 048
  5. ZOMETA [Concomitant]
     Indication: MULTIPLE MYELOMA
     Route: 041
  6. BENAMBAX [Concomitant]
     Indication: MULTIPLE MYELOMA
     Route: 065

REACTIONS (3)
  - HYPERURICAEMIA [None]
  - OEDEMA [None]
  - PROTEINURIA [None]
